FAERS Safety Report 6638552-3 (Version None)
Quarter: 2010Q1

REPORT INFORMATION
  Report Type: 
  Country: None (occurrence: None)
  Receive Date: 20100317
  Receipt Date: 20100310
  Transmission Date: 20100710
  Serious: Yes (Other)
  Sender: FDA-Public Use
  Company Number: GB-NAPPMUNDI-GBR-2010-0006264

PATIENT
  Age: 70 Year
  Sex: Male

DRUGS (1)
  1. UNIPHYLLIN CONTINUS TABLETS [Suspect]
     Indication: DRUG USE FOR UNKNOWN INDICATION
     Dosage: UNK TABLET, UNK
     Route: 048
     Dates: start: 20100205

REACTIONS (1)
  - DEPRESSION [None]
